FAERS Safety Report 15878624 (Version 2)
Quarter: 2019Q1

REPORT INFORMATION
  Report Type: Spontaneous
  Country: US (occurrence: US)
  Receive Date: 20190128
  Receipt Date: 20190301
  Transmission Date: 20190417
  Serious: No
  Sender: FDA-Public Use
  Company Number: US-PFIZER INC-2018508745

PATIENT
  Age: 37 Year
  Sex: Female

DRUGS (2)
  1. LYRICA [Suspect]
     Active Substance: PREGABALIN
     Dosage: 100 MG, 3X/DAY
  2. LYRICA [Suspect]
     Active Substance: PREGABALIN
     Indication: PAIN
     Dosage: 75 MG, 3X/DAY, (ONE CAPSULE BY MOUTH THREE TIMES A DAY)
     Route: 048
     Dates: start: 20181126, end: 20181203

REACTIONS (1)
  - Drug ineffective [Not Recovered/Not Resolved]
